FAERS Safety Report 10993530 (Version 3)
Quarter: 2015Q2

REPORT INFORMATION
  Report Type: Spontaneous
  Country: JP (occurrence: JP)
  Receive Date: 20150407
  Receipt Date: 20150428
  Transmission Date: 20150821
  Serious: Yes (Death, Hospitalization, Other)
  Sender: FDA-Public Use
  Company Number: JP-ROCHE-1561134

PATIENT
  Age: 89 Year
  Sex: Male

DRUGS (1)
  1. XOLAIR [Suspect]
     Active Substance: OMALIZUMAB
     Indication: ASTHMA
     Route: 058

REACTIONS (7)
  - Marasmus [Fatal]
  - Gastrointestinal haemorrhage [Fatal]
  - Blood pressure decreased [Unknown]
  - Atrial fibrillation [Unknown]
  - Chronic kidney disease [Fatal]
  - Pneumonia [Unknown]
  - Femur fracture [Unknown]

NARRATIVE: CASE EVENT DATE: 20130513
